FAERS Safety Report 9715431 (Version 2)
Quarter: 2014Q1

REPORT INFORMATION
  Report Type: Spontaneous
  Country: NZ (occurrence: NZ)
  Receive Date: 20131127
  Receipt Date: 20140128
  Transmission Date: 20141002
  Serious: Yes (Hospitalization, Other)
  Sender: FDA-Public Use
  Company Number: NZ-009507513-1311NZL008699

PATIENT
  Age: 90 Year
  Sex: Female

DRUGS (10)
  1. FOSAMAX PLUS [Suspect]
     Indication: OSTEOPOROSIS
     Dosage: UNK UNK, QW
     Route: 048
     Dates: start: 20070928, end: 20130604
  2. CETOMACROGOL 1000 [Concomitant]
  3. CHOLECALCIFEROL [Concomitant]
     Dosage: 1.25 MG, QM
     Route: 048
  4. DILTIAZEM HYDROCHLORIDE [Concomitant]
     Dosage: 30 MG, QAM
     Route: 048
  5. FUROSEMIDE [Concomitant]
     Dosage: 40 MG, QAM
  6. ESTROFEM (ESTRADIOL) [Concomitant]
     Dosage: 2 MG, HS
     Route: 048
  7. OMEPRAZOLE [Concomitant]
     Dosage: 20 MG, BID
     Route: 048
  8. KONSYL POWDER [Concomitant]
     Dosage: 1 TEASPOON THREE TIMES A DAY
  9. SIMVASTATIN [Concomitant]
     Dosage: 20 MG, HS
     Route: 048
  10. SPIRONOLACTONE [Concomitant]
     Dosage: 25 MG, QAM
     Route: 048

REACTIONS (3)
  - Atypical femur fracture [Unknown]
  - Metastatic neoplasm [Unknown]
  - Internal fixation of fracture [Unknown]
